FAERS Safety Report 17612416 (Version 1)
Quarter: 2020Q2

REPORT INFORMATION
  Report Type: Spontaneous
  Country: US (occurrence: US)
  Receive Date: 20200401
  Receipt Date: 20200401
  Transmission Date: 20200713
  Serious: Yes (Other)
  Sender: FDA-Public Use
  Company Number: US-FRESENIUS KABI-FK202003265

PATIENT
  Age: 4 Year
  Sex: Male

DRUGS (5)
  1. IMIPENEM/CILASTATIN SODIUM [Concomitant]
     Active Substance: CILASTATIN SODIUM\IMIPENEM
  2. LINEZOLID. [Concomitant]
     Active Substance: LINEZOLID
  3. LINEZOLID (MANUFACTURER UNKNOWN) [Suspect]
     Active Substance: LINEZOLID
     Indication: PRODUCT USED FOR UNKNOWN INDICATION
     Dosage: 10 MG/KG EVERY 8 HOURS
     Route: 042
  4. CLOFAZIMINE [Concomitant]
     Active Substance: CLOFAZIMINE
     Route: 048
  5. AMIKACIN. [Concomitant]
     Active Substance: AMIKACIN
     Route: 042

REACTIONS (3)
  - Bone marrow failure [Unknown]
  - Product use issue [Unknown]
  - Neutropenia [Unknown]
